FAERS Safety Report 8277076-7 (Version None)
Quarter: 2012Q2

REPORT INFORMATION
  Report Type: 
  Country: None (occurrence: None)
  Receive Date: 20120412
  Receipt Date: 20120328
  Transmission Date: 20120825
  Serious: Yes (Other)
  Sender: FDA-Public Use
  Company Number: DE-ROCHE-1056510

PATIENT
  Age: 70 Year
  Sex: Female

DRUGS (4)
  1. TORSEMIDE [Suspect]
     Indication: AORTIC VALVE REPLACEMENT
  2. AMIODARONE HCL [Concomitant]
     Indication: AORTIC VALVE REPLACEMENT
  3. LOSARTAN POTASSIUM [Concomitant]
     Indication: AORTIC VALVE REPLACEMENT
  4. BISOPROLOL FUMARATE [Concomitant]

REACTIONS (1)
  - CUTANEOUS LUPUS ERYTHEMATOSUS [None]
